FAERS Safety Report 6699879-2 (Version None)
Quarter: 2010Q2

REPORT INFORMATION
  Report Type: 
  Country: None (occurrence: None)
  Receive Date: 20100428
  Receipt Date: 20100415
  Transmission Date: 20101027
  Serious: Yes (Death)
  Sender: FDA-Public Use
  Company Number: US-RANBAXY-2010US-33240

PATIENT

DRUGS (2)
  1. METFORMIN [Suspect]
     Indication: DRUG USE FOR UNKNOWN INDICATION
     Dosage: 60 TABLETS OF 500 MG, UNK
     Route: 048
  2. LISINOPRIL AND HYDROCHLOROTHIAZIDE [Suspect]
     Indication: DRUG USE FOR UNKNOWN INDICATION
     Dosage: 20/12.5 MG, INGESTED 20-25 TABLETS
     Route: 048

REACTIONS (2)
  - LACTIC ACIDOSIS [None]
  - OVERDOSE [None]
